FAERS Safety Report 6547253-1 (Version None)
Quarter: 2010Q1

REPORT INFORMATION
  Report Type: 
  Country: None (occurrence: None)
  Receive Date: 20100122
  Receipt Date: 20090128
  Transmission Date: 20100710
  Serious: No
  Sender: FDA-Public Use
  Company Number: US-BAUSCH-2009BL000358

PATIENT
  Age: 76 Year
  Sex: Male
  Weight: 77 kg

DRUGS (6)
  1. ZYLET [Suspect]
     Indication: EYELID INFECTION
     Route: 047
     Dates: start: 20081213, end: 20090102
  2. TETRACYCLINE [Concomitant]
     Indication: ROSACEA
     Route: 048
  3. PROPRANOLOL [Concomitant]
     Indication: TREMOR
     Route: 048
     Dates: start: 19990101
  4. DIOVAN [Concomitant]
     Indication: HYPERTENSION
     Route: 048
     Dates: start: 20070101
  5. FLOMAX [Concomitant]
     Indication: PROSTATOMEGALY
     Route: 048
     Dates: start: 20070101
  6. NASONEX [Concomitant]
     Indication: NASAL POLYPS
     Route: 045
     Dates: start: 20070101

REACTIONS (1)
  - OCULAR HYPERAEMIA [None]
